FAERS Safety Report 9452330 (Version 2)
Quarter: 2014Q3

REPORT INFORMATION
  Report Type: Spontaneous
  Country: DK (occurrence: DK)
  Receive Date: 20130812
  Receipt Date: 20140915
  Transmission Date: 20150326
  Serious: Yes (Hospitalization, Other)
  Sender: FDA-Public Use
  Company Number: DK-ELI_LILLY_AND_COMPANY-DK201308000987

PATIENT
  Sex: Female
  Weight: 71 kg

DRUGS (24)
  1. MAGNESIA                           /00123201/ [Concomitant]
  2. PANODIL [Concomitant]
     Active Substance: ACETAMINOPHEN
     Dosage: 1000 MG, QD
     Route: 065
  3. SPIRIVA [Concomitant]
     Active Substance: TIOTROPIUM BROMIDE MONOHYDRATE
     Dosage: 18 UG, QD
     Route: 065
  4. LYSANTIN [Concomitant]
     Dosage: 50 MG, BID
     Route: 065
  5. SERETIDE [Concomitant]
     Active Substance: FLUTICASONE FUROATE\SALMETEROL XINAFOATE
  6. RISPERDAL CONSTA [Suspect]
     Active Substance: RISPERIDONE
     Dosage: 1 DF, UNKNOWN
     Route: 065
     Dates: start: 20090407, end: 201111
  7. KALIUM CHLORID [Concomitant]
  8. XEPLION                            /05724801/ [Concomitant]
     Active Substance: PALIPERIDONE PALMITATE
     Dosage: 75 MG, QD
     Route: 065
  9. SELEXID                            /00445301/ [Concomitant]
     Dosage: 400 MG, TID
     Route: 065
  10. BRENTACORT [Concomitant]
  11. HJERTEMAGNYL                       /00228701/ [Concomitant]
     Active Substance: ASPIRIN\MAGNESIUM OXIDE
     Dosage: 75 MG, QD
     Route: 065
  12. NITROGLYCERIN. [Concomitant]
     Active Substance: NITROGLYCERIN
     Dosage: 0.25 MG, UNKNOWN
     Route: 065
  13. MECILLINAM [Concomitant]
  14. OMEPRAZOL                          /00661201/ [Concomitant]
     Active Substance: OMEPRAZOLE
     Dosage: 20 MG, BID
     Route: 065
     Dates: start: 20140407
  15. KLORAMFENIKOL                      /00011701/ [Concomitant]
     Dosage: UNK
     Dates: start: 20140401
  16. SALBUTAMOL [Concomitant]
     Active Substance: ALBUTEROL
     Dosage: 15 MG, BID
     Route: 065
  17. NATRIUMKLORID BAXTER [Concomitant]
  18. SALMETEROL XINAFOATE [Concomitant]
     Active Substance: SALMETEROL XINAFOATE
  19. RISPERDAL [Suspect]
     Active Substance: RISPERIDONE
     Dosage: 1 DF, UNKNOWN
     Route: 065
     Dates: start: 20090407, end: 201111
  20. MACROGOL [Concomitant]
     Active Substance: POLYETHYLENE GLYCOLS
  21. ZYPREXA [Suspect]
     Active Substance: OLANZAPINE
     Indication: SCHIZOPHRENIA
     Dosage: 1 DF, UNKNOWN
     Route: 065
     Dates: start: 20090407, end: 201111
  22. CALCIUM CARBONATE. [Concomitant]
     Active Substance: CALCIUM CARBONATE
     Dosage: 1 DF, QD
     Route: 065
  23. SIMVASTATIN. [Concomitant]
     Active Substance: SIMVASTATIN
     Dosage: 40 MG, QD
     Route: 065
  24. FLUTICASONE PROPIONATE. [Concomitant]
     Active Substance: FLUTICASONE PROPIONATE

REACTIONS (6)
  - Abdominal pain [Not Recovered/Not Resolved]
  - Constipation [Not Recovered/Not Resolved]
  - Intra-abdominal haemorrhage [Unknown]
  - Diarrhoea [Not Recovered/Not Resolved]
  - Back pain [Unknown]
  - Gait disturbance [Unknown]
